FAERS Safety Report 7110155-6 (Version None)
Quarter: 2010Q4

REPORT INFORMATION
  Report Type: 
  Country: None (occurrence: None)
  Receive Date: 20101118
  Receipt Date: 20101110
  Transmission Date: 20110411
  Serious: Yes (Other)
  Sender: FDA-Public Use
  Company Number: JP-NOVOPROD-318299

PATIENT
  Age: 43 Year
  Sex: Female

DRUGS (3)
  1. PENFILL 30R CHU [Suspect]
     Indication: DIABETES MELLITUS
     Dosage: UNK, BID
     Route: 058
  2. NOVORAPID CHU FLEXPEN [Suspect]
     Indication: DIABETES MELLITUS
     Dosage: UNK
     Route: 065
  3. LISPRO INSULIN [Suspect]
     Indication: DIABETES MELLITUS

REACTIONS (2)
  - ANTI-INSULIN ANTIBODY INCREASED [None]
  - HYPOGLYCAEMIA UNAWARENESS [None]
